FAERS Safety Report 5769588-2 (Version None)
Quarter: 2008Q2

REPORT INFORMATION
  Report Type: 
  Country: None (occurrence: None)
  Receive Date: 20080612
  Receipt Date: 20080403
  Transmission Date: 20081010
  Serious: No
  Sender: FDA-Public Use
  Company Number: US-ABBOTT-08P-163-0445667-00

PATIENT
  Sex: Female
  Weight: 79.45 kg

DRUGS (3)
  1. HUMIRA [Suspect]
     Indication: PSORIATIC ARTHROPATHY
     Route: 058
     Dates: start: 20080322
  2. HUMIRA [Suspect]
     Indication: ANKYLOSING SPONDYLITIS
  3. MELOXICAM [Concomitant]
     Indication: ARTHRALGIA
     Route: 048
     Dates: start: 20060101

REACTIONS (1)
  - INJECTION SITE ERYTHEMA [None]
